FAERS Safety Report 17978781 (Version 1)
Quarter: 2020Q3

REPORT INFORMATION
  Report Type: Spontaneous
  Country: US (occurrence: US)
  Receive Date: 20200703
  Receipt Date: 20200703
  Transmission Date: 20201103
  Serious: No
  Sender: FDA-Public Use
  Company Number: US-009507513-2007USA000609

PATIENT
  Age: 68 Year
  Sex: Female

DRUGS (3)
  1. JANUVIA [Suspect]
     Active Substance: SITAGLIPTIN PHOSPHATE
     Indication: TYPE 2 DIABETES MELLITUS
     Dosage: 25 MG ONCE DAILY
     Route: 048
     Dates: start: 20200625
  2. ELIQUIS [Concomitant]
     Active Substance: APIXABAN
     Dosage: UNK
  3. REPATHA [Concomitant]
     Active Substance: EVOLOCUMAB
     Dosage: UNK

REACTIONS (3)
  - Abdominal pain upper [Recovered/Resolved]
  - Defaecation urgency [Recovered/Resolved]
  - Diarrhoea [Recovered/Resolved]

NARRATIVE: CASE EVENT DATE: 20200627
